FAERS Safety Report 5475514-6 (Version None)
Quarter: 2007Q4

REPORT INFORMATION
  Report Type: 
  Country: None (occurrence: None)
  Receive Date: 20071001
  Receipt Date: 20070925
  Transmission Date: 20080405
  Serious: Yes (Death, Other)
  Sender: FDA-Public Use
  Company Number: 2007SP018948

PATIENT
  Age: 52 Year
  Sex: Male

DRUGS (6)
  1. TEMOZOLOMIDE [Suspect]
     Indication: ASTROCYTOMA
     Dosage: PO
     Route: 048
     Dates: start: 20060413, end: 20060517
  2. ALLOPURINOL [Concomitant]
  3. KEPPRA [Concomitant]
  4. PROTONIX [Concomitant]
  5. DILANTIN [Concomitant]
  6. TOPROL-XL [Concomitant]

REACTIONS (3)
  - APLASTIC ANAEMIA [None]
  - BONE MARROW FAILURE [None]
  - NEPHROLITHIASIS [None]
